FAERS Safety Report 6038402-2 (Version None)
Quarter: 2009Q1

REPORT INFORMATION
  Report Type: 
  Country: None (occurrence: None)
  Receive Date: 20090115
  Receipt Date: 20081215
  Transmission Date: 20090719
  Serious: No
  Sender: FDA-Public Use
  Company Number: US-BAYER-200814903BCC

PATIENT
  Age: 83 Year
  Sex: Female
  Weight: 59 kg

DRUGS (8)
  1. ALEVE (CAPLET) [Suspect]
     Indication: OROPHARYNGEAL PAIN
     Dosage: UNIT DOSE: 220 MG
     Route: 048
     Dates: start: 20081214
  2. LEVOTHYROXINE SODIUM [Concomitant]
  3. EVISTA [Concomitant]
  4. SIMVASTATIN [Concomitant]
  5. ASPIRIN [Concomitant]
     Dosage: UNIT DOSE: 81 MG
  6. ECE MULTIVITAMIN [Concomitant]
  7. CALCIUM [Concomitant]
  8. FLAX SEED OIL [Concomitant]

REACTIONS (1)
  - ABDOMINAL DISCOMFORT [None]
